FAERS Safety Report 7536224-4 (Version None)
Quarter: 2011Q2

REPORT INFORMATION
  Report Type: 
  Country: None (occurrence: None)
  Receive Date: 20110608
  Receipt Date: 20110608
  Transmission Date: 20111010
  Serious: Yes (Life-Threatening, Hospitalization, Other)
  Sender: FDA-Public Use
  Company Number: None

PATIENT
  Age: 82 Year
  Sex: Female
  Weight: 49.8957 kg

DRUGS (6)
  1. CRESTOR [Concomitant]
  2. FUROSEMIDE [Suspect]
     Indication: OEDEMA PERIPHERAL
     Dosage: 20 MG ONCE PER DAY BUCCAL
     Route: 002
     Dates: start: 20110602, end: 20110605
  3. FUROSEMIDE [Suspect]
     Indication: FLUID RETENTION
     Dosage: 20 MG ONCE PER DAY BUCCAL
     Route: 002
     Dates: start: 20110602, end: 20110605
  4. GABAPENTIN [Concomitant]
  5. AMLODIPINE [Suspect]
     Indication: HYPERTENSION
     Dosage: 10 MG ONCE PER DAY BUCCAL
     Route: 002
     Dates: start: 20110602, end: 20110605
  6. ARICEPT [Concomitant]

REACTIONS (5)
  - MUSCLE SPASMS [None]
  - DIZZINESS [None]
  - BLOOD PRESSURE INCREASED [None]
  - ARRHYTHMIA [None]
  - OEDEMA PERIPHERAL [None]
